FAERS Safety Report 16337709 (Version 2)
Quarter: 2019Q2

REPORT INFORMATION
  Report Type: Report from Study
  Country: NL (occurrence: NL)
  Receive Date: 20190521
  Receipt Date: 20190620
  Transmission Date: 20190711
  Serious: Yes (Hospitalization)
  Sender: FDA-Public Use
  Company Number: PHHY2019NL114578

PATIENT
  Age: 71 Year
  Sex: Male

DRUGS (1)
  1. SANDOSTATIN LAR DEPOT [Suspect]
     Active Substance: OCTREOTIDE ACETATE
     Indication: PANCREATIC NEUROENDOCRINE TUMOUR
     Dosage: 30 MG/2 ML, QMO
     Route: 030

REACTIONS (12)
  - Eating disorder [Unknown]
  - Blood parathyroid hormone abnormal [Unknown]
  - General physical health deterioration [Unknown]
  - Diabetes mellitus [Unknown]
  - Hypercalcaemia [Unknown]
  - Coordination abnormal [Unknown]
  - Malaise [Unknown]
  - Gait disturbance [Unknown]
  - Pituitary-dependent Cushing^s syndrome [Unknown]
  - Muscular weakness [Unknown]
  - Pancreatic neuroendocrine tumour [Unknown]
  - Malignant neoplasm progression [Unknown]

NARRATIVE: CASE EVENT DATE: 20190514
